FAERS Safety Report 8276554-4 (Version None)
Quarter: 2012Q2

REPORT INFORMATION
  Report Type: 
  Country: None (occurrence: None)
  Receive Date: 20120412
  Receipt Date: 20120409
  Transmission Date: 20120825
  Serious: Yes (Other)
  Sender: FDA-Public Use
  Company Number: CA-TEVA-332780USA

PATIENT
  Age: 17 Year
  Sex: Female

DRUGS (2)
  1. MEDROXYPROGESTERONE [Suspect]
     Indication: PELVIC PAIN
  2. METRONIDAZOLE [Concomitant]
     Indication: VAGINITIS BACTERIAL
     Route: 065

REACTIONS (9)
  - ASTHENIA [None]
  - ANHEDONIA [None]
  - INTENTIONAL SELF-INJURY [None]
  - MORBID THOUGHTS [None]
  - AFFECTIVE DISORDER [None]
  - DEPRESSION [None]
  - DISTURBANCE IN ATTENTION [None]
  - OBSESSIVE THOUGHTS [None]
  - WEIGHT DECREASED [None]
